FAERS Safety Report 8172939-5 (Version None)
Quarter: 2012Q1

REPORT INFORMATION
  Report Type: 
  Country: None (occurrence: None)
  Receive Date: 20120104
  Receipt Date: 20111109
  Transmission Date: 20120608
  Serious: No
  Sender: FDA-Public Use
  Company Number: 2011HGS-002767

PATIENT
  Age: 52 Year
  Sex: Female
  Weight: 99.7913 kg

DRUGS (14)
  1. VITAMIN B12 (CYANOCOBALAMIN) (CYANOCOBALAMIN) [Concomitant]
  2. FOLIC ACID [Concomitant]
  3. POTASSIUM CHLORIDE [Concomitant]
  4. CYMBALTA (ANTIDEPRESSANTS) (DULOXETINE HYDROCHLORIDE) [Concomitant]
  5. TEMAZEPAM [Concomitant]
  6. AMLODIPINE [Concomitant]
  7. GABAPENTIN [Concomitant]
  8. AMITRIPTYLINE (AMITRIPTYLINE) (AMITRIPTYLLINE) [Concomitant]
  9. BENLYSTA [Suspect]
     Indication: SYSTEMIC LUPUS ERYTHEMATOSUS
     Dosage: INTRAVENOUS DRIP
     Route: 041
     Dates: start: 20110606
  10. HYDROXYCHLOROQUINE (HYDROXYCHLOROQUINE) (HYDROXYCHLOROQUINE) [Concomitant]
  11. XANAX [Concomitant]
  12. OMEPRAZOLE [Concomitant]
  13. AZATHIOPRINE (AZATHIOPRINE) (AZATHIOPRINE) [Concomitant]
  14. PROZAC [Concomitant]

REACTIONS (1)
  - PAIN [None]
